FAERS Safety Report 14092912 (Version 4)
Quarter: 2017Q4

REPORT INFORMATION
  Report Type: Spontaneous
  Country: JP (occurrence: JP)
  Receive Date: 20171016
  Receipt Date: 20171204
  Transmission Date: 20180321
  Serious: Yes (Hospitalization)
  Sender: FDA-Public Use
  Company Number: JP-PFIZER INC-2017441279

PATIENT
  Age: 70 Year
  Sex: Male

DRUGS (6)
  1. ANCARON [Interacting]
     Active Substance: AMIODARONE HYDROCHLORIDE
     Indication: VENTRICULAR FIBRILLATION
     Dosage: 450 MG, UNK (TOTAL)
     Route: 042
  2. CARVEDILOL. [Interacting]
     Active Substance: CARVEDILOL
     Indication: VENTRICULAR TACHYCARDIA
     Dosage: UNK
     Route: 048
  3. ANCARON [Interacting]
     Active Substance: AMIODARONE HYDROCHLORIDE
     Indication: CARDIO-RESPIRATORY ARREST
     Dosage: UNK
     Route: 042
  4. ANCARON [Suspect]
     Active Substance: AMIODARONE HYDROCHLORIDE
     Indication: VENTRICULAR FIBRILLATION
     Dosage: UNK
     Route: 048
  5. ANCARON [Interacting]
     Active Substance: AMIODARONE HYDROCHLORIDE
     Indication: CARDIO-RESPIRATORY ARREST
  6. EPINEPHRINE. [Concomitant]
     Active Substance: EPINEPHRINE
     Dosage: 5 MG, UNK (TOTAL)
     Route: 042

REACTIONS (6)
  - Drug interaction [Recovered/Resolved]
  - Bradycardia [Unknown]
  - Blood pressure decreased [Unknown]
  - Depressed level of consciousness [Unknown]
  - Electrocardiogram QT prolonged [Unknown]
  - Ventricular tachycardia [Unknown]
